FAERS Safety Report 25369313 (Version 1)
Quarter: 2025Q2

REPORT INFORMATION
  Report Type: Spontaneous
  Country: CN (occurrence: CN)
  Receive Date: 20250528
  Receipt Date: 20250528
  Transmission Date: 20250716
  Serious: Yes (Hospitalization)
  Sender: ABBVIE
  Company Number: CN-ABBVIE-6295733

PATIENT
  Age: 69 Year
  Sex: Female
  Weight: 62 kg

DRUGS (7)
  1. VENETOCLAX [Suspect]
     Active Substance: VENETOCLAX
     Indication: Chemotherapy
     Dosage: 400 MILLIGRAM
     Route: 048
     Dates: start: 20250423, end: 20250430
  2. STERILE WATER [Concomitant]
     Active Substance: WATER
     Indication: Vehicle solution use
     Dosage: 4 ML?ROA- INTRAVENOUS DRIP
     Route: 065
     Dates: start: 20250423, end: 20250430
  3. CYTARABINE [Suspect]
     Active Substance: CYTARABINE
     Indication: Chemotherapy
     Dosage: 20 MILLIGRAM
     Route: 058
     Dates: start: 20250424, end: 20250509
  4. DEXTROSE [Concomitant]
     Active Substance: DEXTROSE MONOHYDRATE
     Indication: Vehicle solution use
     Dosage: 250 ML, ROA- INTRAVENOUS DRIP
     Route: 065
     Dates: start: 20250424, end: 20250430
  5. OMACETAXINE MEPESUCCINATE [Suspect]
     Active Substance: OMACETAXINE MEPESUCCINATE
     Indication: Chemotherapy
     Dosage: 2 MILLIGRAM, ROA- INTRAVENOUS DRIP
     Route: 065
     Dates: start: 20250424, end: 20250430
  6. SODIUM CHLORIDE [Concomitant]
     Active Substance: SODIUM CHLORIDE
     Indication: Vehicle solution use
     Dosage: 5 ML, ROA- INTRAVENOUS DRIP
     Route: 065
     Dates: start: 20250424, end: 20250507
  7. AZACITIDINE [Suspect]
     Active Substance: AZACITIDINE
     Indication: Chemotherapy
     Dosage: 100 MILLIGRAM
     Route: 058
     Dates: start: 20250423, end: 20250430

REACTIONS (3)
  - Myelosuppression [Recovering/Resolving]
  - Haemorrhage [Recovering/Resolving]
  - Full blood count increased [Unknown]

NARRATIVE: CASE EVENT DATE: 20250505
